FAERS Safety Report 6263698-1 (Version None)
Quarter: 2009Q3

REPORT INFORMATION
  Report Type: 
  Country: None (occurrence: None)
  Receive Date: 20090710
  Receipt Date: 20090630
  Transmission Date: 20100115
  Serious: Yes (Hospitalization, Other)
  Sender: FDA-Public Use
  Company Number: US-PFIZER INC-2009218413

PATIENT
  Sex: Male
  Weight: 72.562 kg

DRUGS (17)
  1. GEODON [Suspect]
     Indication: DEMENTIA ALZHEIMER'S TYPE
     Dosage: FREQUENCY: 2X/DAY, DAILY;
     Dates: start: 20090301
  2. MECLIZINE [Suspect]
  3. REMICADE [Concomitant]
     Indication: ARTHRITIS
     Dosage: UNK
  4. FOLIC ACID [Concomitant]
     Dosage: UNK
  5. MOBIC [Concomitant]
     Dosage: UNK
  6. METHOTREXATE [Concomitant]
     Dosage: UNK
  7. NAMENDA [Concomitant]
     Dosage: UNK
  8. ARICEPT [Concomitant]
     Dosage: UNK
  9. ZOLOFT [Concomitant]
     Dosage: UNK
  10. ZOCOR [Concomitant]
     Dosage: UNK
  11. PLAVIX [Concomitant]
     Dosage: UNK
  12. PRILOSEC [Concomitant]
     Dosage: UNK
  13. ACETYLSALICYLIC ACID [Concomitant]
     Dosage: UNK
  14. DAILY VITAMINS [Concomitant]
     Dosage: UNK
  15. EXTRA STRENGTH TYLENOL [Concomitant]
     Dosage: UNK
  16. CALCIUM [Concomitant]
     Dosage: 500 MG, 3X/DAY
  17. XANAX [Concomitant]

REACTIONS (12)
  - AGITATION [None]
  - AMNESIA [None]
  - CORONARY ARTERY OCCLUSION [None]
  - DEHYDRATION [None]
  - DISORIENTATION [None]
  - DIZZINESS [None]
  - DRUG EFFECT DECREASED [None]
  - FEELING ABNORMAL [None]
  - HEART RATE DECREASED [None]
  - HYPERSOMNIA [None]
  - IRRITABILITY [None]
  - NAUSEA [None]
